FAERS Safety Report 17424074 (Version 2)
Quarter: 2020Q1

REPORT INFORMATION
  Report Type: Spontaneous
  Country: US (occurrence: US)
  Receive Date: 20200217
  Receipt Date: 20200331
  Transmission Date: 20200409
  Serious: Yes (Other)
  Sender: FDA-Public Use
  Company Number: US-GILEAD-2020-0450656

PATIENT
  Age: 54 Year
  Sex: Male

DRUGS (40)
  1. ACYCLOVIR [ACICLOVIR] [Concomitant]
     Active Substance: ACYCLOVIR
  2. OMEGA-3 FATTY ACIDS [Concomitant]
     Active Substance: OMEGA-3 FATTY ACIDS
  3. ATORVASTATIN CALCIUM. [Concomitant]
     Active Substance: ATORVASTATIN CALCIUM
  4. GENTAK [Concomitant]
     Active Substance: GENTAMICIN SULFATE
  5. MYCOBUTIN [Concomitant]
     Active Substance: RIFABUTIN
  6. CLARITHROMYCIN. [Concomitant]
     Active Substance: CLARITHROMYCIN
  7. GENVOYA [Concomitant]
     Active Substance: COBICISTAT\ELVITEGRAVIR\EMTRICITABINE\TENOFOVIR ALAFENAMIDE FUMARATE
     Indication: HIV INFECTION
     Dosage: 1 DOSAGE FORM (150-150-200-10 MG), QD
     Dates: start: 201901
  8. COENZYME Q10 [Concomitant]
     Active Substance: UBIDECARENONE
  9. MILK THISTLE [SILYBUM MARIANUM] [Concomitant]
     Active Substance: DIETARY SUPPLEMENT\HERBALS\MILK THISTLE
  10. RED YEAST RICE [Concomitant]
     Active Substance: DIETARY SUPPLEMENT
  11. METHYLPREDNISOLONE. [Concomitant]
     Active Substance: METHYLPREDNISOLONE
  12. TRAMADOL. [Concomitant]
     Active Substance: TRAMADOL
  13. AMOXICILLIN. [Concomitant]
     Active Substance: AMOXICILLIN
  14. OMEPRAZOLE. [Concomitant]
     Active Substance: OMEPRAZOLE
  15. FENOFIBRATE. [Concomitant]
     Active Substance: FENOFIBRATE
  16. KETOCONAZOLE. [Concomitant]
     Active Substance: KETOCONAZOLE
  17. TRUVADA [Suspect]
     Active Substance: EMTRICITABINE\TENOFOVIR DISOPROXIL FUMARATE
     Indication: HIV INFECTION
     Dosage: 200-300 MG
     Route: 048
     Dates: start: 20130130, end: 20130824
  18. CIPRO [Concomitant]
     Active Substance: CIPROFLOXACIN HYDROCHLORIDE
  19. ASPIRIN EC [Concomitant]
     Active Substance: ASPIRIN
  20. METOPROLOL. [Concomitant]
     Active Substance: METOPROLOL
  21. TEMAZEPAM. [Concomitant]
     Active Substance: TEMAZEPAM
  22. TINIDAZOLE. [Concomitant]
     Active Substance: TINIDAZOLE
  23. PATADAY [Concomitant]
     Active Substance: OLOPATADINE HYDROCHLORIDE
  24. IRBESARTAN. [Concomitant]
     Active Substance: IRBESARTAN
  25. VITAMIN D [COLECALCIFEROL] [Concomitant]
     Active Substance: CHOLECALCIFEROL
  26. BLACK CURRANT OIL [RIBES NIGRUM OIL] [Concomitant]
  27. DOXYCYCLINE. [Concomitant]
     Active Substance: DOXYCYCLINE
  28. CLINDAMYCIN. [Concomitant]
     Active Substance: CLINDAMYCIN
  29. HYDROCODONE BITARTRATE AND ACETAMINOPHEN [Concomitant]
     Active Substance: ACETAMINOPHEN\HYDROCODONE BITARTRATE
  30. DESONIDE. [Concomitant]
     Active Substance: DESONIDE
  31. TRETINOIN. [Concomitant]
     Active Substance: TRETINOIN
  32. STRIBILD [Suspect]
     Active Substance: COBICISTAT\ELVITEGRAVIR\EMTRICITABINE\TENOFOVIR DISOPROXIL FUMARATE
     Indication: HIV INFECTION
     Dosage: 1 DOSAGE FORM (150-150-200-300 MG), QD
     Route: 048
     Dates: start: 20131023, end: 20181022
  33. FLAGYL [Concomitant]
     Active Substance: METRONIDAZOLE\METRONIDAZOLE HYDROCHLORIDE
  34. LISINOPRIL. [Concomitant]
     Active Substance: LISINOPRIL
  35. MOMETASONE FUROATE. [Concomitant]
     Active Substance: MOMETASONE FUROATE
  36. ZOLPIDEM TARTRATE. [Concomitant]
     Active Substance: ZOLPIDEM TARTRATE
  37. AMOXICILLIN + CLAV. POTASSIUM [Concomitant]
     Active Substance: AMOXICILLIN\CLAVULANATE POTASSIUM
  38. PANTOPRAZOLE [Concomitant]
     Active Substance: PANTOPRAZOLE
  39. LIDOCAINE. [Concomitant]
     Active Substance: LIDOCAINE
  40. KALETRA [Concomitant]
     Active Substance: LOPINAVIR\RITONAVIR

REACTIONS (10)
  - Chronic kidney disease [Not Recovered/Not Resolved]
  - Anhedonia [Unknown]
  - Asthenia [Not Recovered/Not Resolved]
  - Anxiety [Unknown]
  - Pain [Not Recovered/Not Resolved]
  - Rib fracture [Not Recovered/Not Resolved]
  - Emotional distress [Unknown]
  - Atrophy [Not Recovered/Not Resolved]
  - Dysmorphism [Not Recovered/Not Resolved]
  - Economic problem [Unknown]

NARRATIVE: CASE EVENT DATE: 20180710
